FAERS Safety Report 4821431-1 (Version None)
Quarter: 2005Q4

REPORT INFORMATION
  Report Type: 
  Country: None (occurrence: None)
  Receive Date: 20051104
  Receipt Date: 20051104
  Transmission Date: 20060501
  Serious: Yes (Life-Threatening, Hospitalization, Other)
  Sender: FDA-Public Use
  Company Number: None

PATIENT
  Age: 24 Year
  Sex: Female

DRUGS (3)
  1. SULFAMETHOXAZOLE + TRIMETHOPRIM [Suspect]
     Dosage: TABLET
  2. FLURBIPROFEN [Suspect]
     Dosage: TABLET
  3. DYPHLLINE-GG ELIXER [Suspect]
     Dosage: LIQUID

REACTIONS (14)
  - ABDOMINAL PAIN UPPER [None]
  - ASTHENIA [None]
  - BLINDNESS TRANSIENT [None]
  - CAESAREAN SECTION [None]
  - CHEST PAIN [None]
  - DIZZINESS [None]
  - DRUG EXPOSURE DURING PREGNANCY [None]
  - DRUG INTERACTION [None]
  - DYSPNOEA [None]
  - HEART RATE INCREASED [None]
  - INTRA-UTERINE DEATH [None]
  - MEDICATION ERROR [None]
  - MEMORY IMPAIRMENT [None]
  - SHOCK [None]
